FAERS Safety Report 15205395 (Version 2)
Quarter: 2018Q3

REPORT INFORMATION
  Report Type: Spontaneous
  Country: US (occurrence: US)
  Receive Date: 20180726
  Receipt Date: 20180730
  Transmission Date: 20181010
  Serious: No
  Sender: FDA-Public Use
  Company Number: US-GALDERMA-US18020047

PATIENT
  Age: 30 Year
  Sex: Female

DRUGS (5)
  1. PROACTIV SOLUTION BLACKHEAD DISSOLVING [Concomitant]
     Active Substance: SALICYLIC ACID
     Indication: ACNE
     Route: 061
     Dates: start: 20180504, end: 20180521
  2. LEVOTHYROXINE. [Concomitant]
     Active Substance: LEVOTHYROXINE
     Indication: PRODUCT USED FOR UNKNOWN INDICATION
  3. PROACTIV MD DAILY OIL CONTROL SPF 30 [Suspect]
     Active Substance: AVOBENZONE\OCTISALATE\OCTOCRYLENE
     Indication: ACNE
     Route: 061
     Dates: start: 20180504, end: 20180521
  4. PROACTIV MD DEEP CLEANSING FACE WASH [Concomitant]
     Active Substance: COSMETICS
     Indication: ACNE
     Route: 061
     Dates: start: 20180504, end: 20180521
  5. PROACTIV MD ADAPALENE ACNE TREATMENT [Suspect]
     Active Substance: ADAPALENE
     Indication: ACNE
     Dosage: 0.1%
     Route: 061
     Dates: start: 20180504, end: 20180521

REACTIONS (5)
  - Skin warm [Recovering/Resolving]
  - Pain of skin [Recovering/Resolving]
  - Skin fragility [Recovering/Resolving]
  - Rash macular [Recovering/Resolving]
  - Skin exfoliation [Recovering/Resolving]

NARRATIVE: CASE EVENT DATE: 20180506
